FAERS Safety Report 16111351 (Version 1)
Quarter: 2019Q2

REPORT INFORMATION
  Report Type: Spontaneous
  Country: US (occurrence: US)
  Receive Date: 20190322
  Receipt Date: 20190322
  Transmission Date: 20190711
  Serious: Yes (Hospitalization)
  Sender: FDA-Public Use
  Company Number: None

PATIENT
  Sex: Male

DRUGS (4)
  1. FORTEO [Concomitant]
     Active Substance: TERIPARATIDE
  2. ESBRIET [Suspect]
     Active Substance: PIRFENIDONE
     Indication: IDIOPATHIC PULMONARY FIBROSIS
     Route: 048
     Dates: start: 20190207
  3. HUMIRA [Suspect]
     Active Substance: ADALIMUMAB
     Indication: SENILE OSTEOPOROSIS
     Dosage: ?          OTHER FREQUENCY:Q2W;?
     Route: 058
     Dates: start: 20190112
  4. PANTOPRAZOLE [Concomitant]
     Active Substance: PANTOPRAZOLE

REACTIONS (3)
  - Thrombosis [None]
  - Pneumonia [None]
  - Oxygen saturation decreased [None]
